FAERS Safety Report 12198537 (Version 1)
Quarter: 2016Q1

REPORT INFORMATION
  Report Type: Spontaneous
  Country: US (occurrence: None)
  Receive Date: 20160321
  Receipt Date: 20160321
  Transmission Date: 20160526
  Serious: Yes (Other)
  Sender: FDA-Public Use
  Company Number: None

PATIENT
  Age: 61 Year
  Sex: Male

DRUGS (1)
  1. ZYTIGA [Suspect]
     Active Substance: ABIRATERONE ACETATE
     Indication: PROSTATE CANCER
     Dosage: 250 MG (1000MG DAILY) QDAY ORAL
     Route: 048
     Dates: start: 20151016, end: 20160318

REACTIONS (4)
  - Malaise [None]
  - Movement disorder [None]
  - Eating disorder [None]
  - Weight increased [None]

NARRATIVE: CASE EVENT DATE: 20160318
